FAERS Safety Report 10024179 (Version 1)
Quarter: 2014Q1

REPORT INFORMATION
  Report Type: Spontaneous
  Country: US (occurrence: US)
  Receive Date: 20140320
  Receipt Date: 20140320
  Transmission Date: 20141002
  Serious: No
  Sender: FDA-Public Use
  Company Number: US-PFIZER INC-2014077841

PATIENT
  Sex: Female

DRUGS (6)
  1. FLAGYL [Suspect]
     Dosage: UNK
  2. AZULFIDINE [Suspect]
     Dosage: UNK
  3. ERYTHROMYCIN [Suspect]
     Dosage: UNK
  4. CODEINE [Suspect]
     Dosage: UNK
  5. BACTRIM [Suspect]
     Dosage: UNK
  6. KEFLEX [Suspect]
     Dosage: UNK

REACTIONS (1)
  - Drug hypersensitivity [Unknown]
